FAERS Safety Report 16600017 (Version 1)
Quarter: 2019Q3

REPORT INFORMATION
  Report Type: Spontaneous
  Country: CA (occurrence: CA)
  Receive Date: 20190719
  Receipt Date: 20190719
  Transmission Date: 20191004
  Serious: Yes (Other)
  Sender: FDA-Public Use
  Company Number: CA-AMGEN-CANSP2019112331

PATIENT
  Age: 65 Year
  Sex: Female

DRUGS (1)
  1. ENBREL [Suspect]
     Active Substance: ETANERCEPT
     Indication: RHEUMATOID ARTHRITIS
     Dosage: 50 MILLIGRAM
     Route: 065
     Dates: start: 2015

REACTIONS (5)
  - Basedow^s disease [Not Recovered/Not Resolved]
  - Headache [Unknown]
  - Nausea [Unknown]
  - Gastroenteritis [Unknown]
  - Stomach mass [Unknown]

NARRATIVE: CASE EVENT DATE: 2019
